FAERS Safety Report 9386096 (Version 4)
Quarter: 2013Q3

REPORT INFORMATION
  Report Type: Report from Study
  Country: BR (occurrence: BR)
  Receive Date: 20130706
  Receipt Date: 20130908
  Transmission Date: 20140515
  Serious: Yes (Other)
  Sender: FDA-Public Use
  Company Number: BR-US-EMD SERONO, INC.-7220433

PATIENT
  Age: 42 Year
  Sex: Male

DRUGS (9)
  1. REBIF [Suspect]
     Indication: MULTIPLE SCLEROSIS
     Dosage: (TITRATION OF DOSE) 0.1ML IN THE SYRINGE
     Dates: start: 20130617
  2. OMEPRAZOLE [Concomitant]
     Indication: PROPHYLAXIS
  3. HIDANTAL [Concomitant]
     Indication: PRODUCT USED FOR UNKNOWN INDICATION
  4. BUPROPION HYDROCHLORIDE [Concomitant]
     Indication: PRODUCT USED FOR UNKNOWN INDICATION
  5. RINOSORO                           /01466401/ [Concomitant]
     Indication: RHINITIS
     Dosage: ONE PUFF PER A DAY
  6. BUDESONIDE [Concomitant]
     Indication: RHINITIS
  7. DOMPERIDONE [Concomitant]
     Indication: PRODUCT USED FOR UNKNOWN INDICATION
  8. CARMELLOSE SODIUM [Concomitant]
     Indication: PRODUCT USED FOR UNKNOWN INDICATION
  9. COLLYRIUM                          /00452801/ [Concomitant]
     Indication: EYE DISORDER

REACTIONS (7)
  - Pyrexia [Recovered/Resolved]
  - Discomfort [Recovered/Resolved]
  - Somnolence [Recovered/Resolved]
  - Headache [Recovered/Resolved]
  - Pain [Recovered/Resolved]
  - Fatigue [Recovered/Resolved]
  - Pyrexia [Recovered/Resolved]
